FAERS Safety Report 6347172-X (Version None)
Quarter: 2009Q3

REPORT INFORMATION
  Report Type: 
  Country: None (occurrence: None)
  Receive Date: 20090910
  Receipt Date: 20090901
  Transmission Date: 20100115
  Serious: Yes (Other)
  Sender: FDA-Public Use
  Company Number: PHHY2009JP37271

PATIENT
  Age: 48 Year
  Sex: Female

DRUGS (5)
  1. CYCLOSPORINE [Suspect]
     Indication: STEM CELL TRANSPLANT
     Dosage: UNK
     Dates: start: 20081001
  2. METHOTREXATE [Concomitant]
     Indication: STEM CELL TRANSPLANT
     Dosage: UNK
     Dates: start: 20081001
  3. IRRADIATION [Concomitant]
     Indication: STEM CELL TRANSPLANT
     Dosage: 10 GY
  4. CYCLOPHOSPHAMIDE [Concomitant]
     Indication: STEM CELL TRANSPLANT
     Dosage: 60 MG/KG
  5. URSODIOL [Concomitant]
     Indication: VENOOCCLUSIVE LIVER DISEASE

REACTIONS (2)
  - DISSEMINATED INTRAVASCULAR COAGULATION [None]
  - VENOOCCLUSIVE LIVER DISEASE [None]
